FAERS Safety Report 6150657-2 (Version None)
Quarter: 2009Q2

REPORT INFORMATION
  Report Type: 
  Country: None (occurrence: None)
  Receive Date: 20090409
  Receipt Date: 20090407
  Transmission Date: 20091009
  Serious: No
  Sender: FDA-Public Use
  Company Number: US-B.I. PHARMACEUTICALS,INC./RIDGEFIELD-2009-BP-04326BP

PATIENT
  Age: 62 Year
  Sex: Male

DRUGS (2)
  1. FLOMAX [Suspect]
     Indication: DYSURIA
     Dosage: .4MG
     Route: 048
     Dates: start: 20090304, end: 20090308
  2. FLOMAX [Suspect]
     Indication: BENIGN PROSTATIC HYPERPLASIA

REACTIONS (5)
  - ANXIETY [None]
  - DYSURIA [None]
  - IMPAIRED WORK ABILITY [None]
  - PROSTATOMEGALY [None]
  - SUICIDAL IDEATION [None]
